FAERS Safety Report 7657135-X (Version None)
Quarter: 2011Q3

REPORT INFORMATION
  Report Type: 
  Country: None (occurrence: None)
  Receive Date: 20110804
  Receipt Date: 20110418
  Transmission Date: 20111222
  Serious: No
  Sender: FDA-Public Use
  Company Number: US-GLAXOSMITHKLINE-A0923361A

PATIENT
  Age: 74 Year
  Sex: Female

DRUGS (6)
  1. PROAIR HFA [Concomitant]
  2. ADVAIR DISKUS 100/50 [Suspect]
     Dosage: 1PUFF PER DAY
     Route: 055
     Dates: start: 20040401, end: 20040601
  3. COMBIVENT [Concomitant]
  4. ADVAIR DISKUS 100/50 [Suspect]
     Indication: CHRONIC OBSTRUCTIVE PULMONARY DISEASE
     Dosage: 2PUFF TWICE PER DAY
     Route: 055
     Dates: start: 20110321
  5. SINGULAIR [Concomitant]
  6. OXYGEN [Concomitant]

REACTIONS (5)
  - OROPHARYNGEAL PAIN [None]
  - CANDIDIASIS [None]
  - TREMOR [None]
  - OXYGEN SATURATION DECREASED [None]
  - HEART RATE INCREASED [None]
